FAERS Safety Report 4737801-6 (Version None)
Quarter: 2005Q3

REPORT INFORMATION
  Report Type: 
  Country: None (occurrence: None)
  Receive Date: 20050805
  Receipt Date: 20050727
  Transmission Date: 20060218
  Serious: Yes (Hospitalization)
  Sender: FDA-Public Use
  Company Number: CIP05001766

PATIENT
  Age: 47 Year
  Sex: Male

DRUGS (9)
  1. ACTONEL [Suspect]
     Dosage: 35 MG ONCE WEEKLY, ORAL
     Route: 048
     Dates: start: 20040604
  2. TOPOMAX (TOPIRAMATE) [Concomitant]
  3. ZANTAC [Concomitant]
  4. DEPAKOTE [Concomitant]
  5. LIPITOR [Concomitant]
  6. LASIX (FUROSEMIDE SODIUM, FUROSEMIDE) [Concomitant]
  7. ZYPREXA [Concomitant]
  8. CLONOPIN (CLONAZEPAM) [Concomitant]
  9. SENOKOT-S (SENNA ALEXANDRINA, DOCUSATE SODIUM) [Concomitant]

REACTIONS (2)
  - DRUG RESISTANCE [None]
  - INFECTION [None]
